FAERS Safety Report 5993297-8 (Version None)
Quarter: 2008Q4

REPORT INFORMATION
  Report Type: 
  Country: None (occurrence: None)
  Receive Date: 20081210
  Receipt Date: 20081210
  Transmission Date: 20090506
  Serious: Yes (Life-Threatening, Hospitalization)
  Sender: FDA-Public Use
  Company Number: None

PATIENT
  Sex: Female
  Weight: 65 kg

DRUGS (4)
  1. LAMICTAL [Suspect]
     Indication: BIPOLAR DISORDER
     Dosage: 100 MG ONCE DAILY PO
     Route: 048
     Dates: start: 20080715, end: 20080803
  2. AMOXICILLIN [Concomitant]
  3. CARBOFED [Concomitant]
  4. TESSALON [Concomitant]

REACTIONS (6)
  - COUGH [None]
  - HYPOPHAGIA [None]
  - PYREXIA [None]
  - STEVENS-JOHNSON SYNDROME [None]
  - TOXIC EPIDERMAL NECROLYSIS [None]
  - URINE OUTPUT DECREASED [None]
